FAERS Safety Report 5010842-X (Version None)
Quarter: 2006Q2

REPORT INFORMATION
  Report Type: 
  Country: None (occurrence: None)
  Receive Date: 20060525
  Receipt Date: 20060518
  Transmission Date: 20061013
  Serious: Yes (Other)
  Sender: FDA-Public Use
  Company Number: CA-GLAXOSMITHKLINE-A0606702A

PATIENT
  Age: 26 Year
  Sex: Female

DRUGS (6)
  1. LAMICTAL [Suspect]
     Indication: DRUG USE FOR UNKNOWN INDICATION
     Route: 048
  2. LITHIUM CARBONATE [Suspect]
     Indication: DRUG USE FOR UNKNOWN INDICATION
     Dosage: 500MG UNKNOWN
     Route: 065
  3. RISPERDAL [Suspect]
     Indication: DRUG USE FOR UNKNOWN INDICATION
     Route: 065
  4. TOPAMAX [Suspect]
     Indication: DRUG USE FOR UNKNOWN INDICATION
     Dosage: 100MG UNKNOWN
     Route: 065
  5. CLONAZEPAM [Concomitant]
  6. VALPROIC ACID [Concomitant]

REACTIONS (3)
  - CONFUSIONAL STATE [None]
  - DRUG LEVEL INCREASED [None]
  - LETHARGY [None]
